FAERS Safety Report 8114000-1 (Version None)
Quarter: 2012Q1

REPORT INFORMATION
  Report Type: 
  Country: None (occurrence: None)
  Receive Date: 20120203
  Receipt Date: 20120201
  Transmission Date: 20120608
  Serious: Yes (Hospitalization, Disabling, Other)
  Sender: FDA-Public Use
  Company Number: US-MERCK-1012USA02889

PATIENT
  Age: 44 Year
  Sex: Female
  Weight: 109 kg

DRUGS (11)
  1. AVANDIA [Concomitant]
     Indication: DIABETES MELLITUS
     Route: 065
     Dates: start: 20000101, end: 20070101
  2. METFORMIN [Concomitant]
     Indication: DIABETES MELLITUS
     Route: 065
     Dates: start: 20000101
  3. ALTACE [Concomitant]
     Indication: DIABETES MELLITUS
     Route: 065
     Dates: start: 20000101, end: 20070101
  4. GLIPIZIDE [Concomitant]
     Route: 065
  5. GLUCOPHAGE XR [Concomitant]
     Route: 065
  6. EFFEXOR XR [Concomitant]
     Route: 065
  7. ALENDRONATE SODIUM [Suspect]
     Indication: OSTEOPOROSIS
     Route: 048
     Dates: start: 20080601
  8. FOSAMAX [Suspect]
     Indication: OSTEOPOROSIS
     Route: 048
     Dates: start: 19990101, end: 20080101
  9. FOSAMAX [Suspect]
     Route: 048
     Dates: start: 19990101, end: 20100625
  10. FOSAMAX [Suspect]
     Route: 048
     Dates: start: 20080101, end: 20080601
  11. ALLEGRA [Concomitant]
     Route: 065

REACTIONS (28)
  - BENIGN BREAST LUMP REMOVAL [None]
  - RIB FRACTURE [None]
  - IMPAIRED HEALING [None]
  - SPINAL DISORDER [None]
  - HYPERTENSION [None]
  - TENDONITIS [None]
  - OSTEOARTHRITIS [None]
  - DEPRESSION [None]
  - PULMONARY HILUM MASS [None]
  - SINUSITIS [None]
  - ROTATOR CUFF SYNDROME [None]
  - WRIST FRACTURE [None]
  - DEVICE FAILURE [None]
  - SPINAL OSTEOARTHRITIS [None]
  - TOOTH DISORDER [None]
  - COLONIC POLYP [None]
  - RENAL CELL CARCINOMA [None]
  - ANXIETY [None]
  - RADIUS FRACTURE [None]
  - VITAMIN D DEFICIENCY [None]
  - ULNA FRACTURE [None]
  - FEMUR FRACTURE [None]
  - FRACTURE NONUNION [None]
  - OBESITY [None]
  - FALL [None]
  - ARTHROPATHY [None]
  - MUSCLE STRAIN [None]
  - BLOOD CHOLESTEROL INCREASED [None]
